FAERS Safety Report 7310627-5 (Version None)
Quarter: 2011Q1

REPORT INFORMATION
  Report Type: 
  Country: None (occurrence: None)
  Receive Date: 20110224
  Receipt Date: 20100518
  Transmission Date: 20110831
  Serious: No
  Sender: FDA-Public Use
  Company Number: US-BRISTOL-MYERS SQUIBB COMPANY-15114390

PATIENT
  Age: 56 Year
  Sex: Female

DRUGS (4)
  1. GLUCOPHAGE [Suspect]
     Dosage: TAKEN 2 YEARS AGO
  2. ATENOLOL [Concomitant]
  3. TRIAMTERENE [Concomitant]
  4. MECLIZINE [Concomitant]

REACTIONS (1)
  - RASH [None]
